FAERS Safety Report 4621988-X (Version None)
Quarter: 2005Q1

REPORT INFORMATION
  Report Type: 
  Country: None (occurrence: None)
  Receive Date: 20050328
  Receipt Date: 20050318
  Transmission Date: 20050727
  Serious: Yes (Other)
  Sender: FDA-Public Use
  Company Number: 2005-02-1641

PATIENT
  Age: 6 Year
  Sex: Male
  Weight: 27.6694 kg

DRUGS (3)
  1. NASONEX [Suspect]
     Indication: SNEEZING
     Dosage: 50 MCG NASAL SPRAY
     Route: 045
     Dates: start: 20050218, end: 20050218
  2. COLD MEDICATION OTC (NOS) [Suspect]
     Indication: SNEEZING
     Dosage: ON OCCASION
     Dates: start: 20041201
  3. UNSPECIFIED THERAPEUTIC AGENT [Concomitant]

REACTIONS (6)
  - ABNORMAL BEHAVIOUR [None]
  - FEELING ABNORMAL [None]
  - HALLUCINATION [None]
  - SLEEP TERROR [None]
  - VERTIGO [None]
  - VISION BLURRED [None]
